FAERS Safety Report 9926136 (Version 1)
Quarter: 2014Q1

REPORT INFORMATION
  Report Type: Report from Study
  Country: US (occurrence: US)
  Receive Date: 20140226
  Receipt Date: 20140226
  Transmission Date: 20141002
  Serious: Yes (Hospitalization)
  Sender: FDA-Public Use
  Company Number: US-MILLENNIUM PHARMACEUTICALS, INC.-2014TUS001302

PATIENT
  Age: 72 Year
  Sex: Male
  Weight: 112.8 kg

DRUGS (26)
  1. BLINDED ALLOPURINOL [Suspect]
     Indication: HYPERURICAEMIA
     Dosage: UNK, QD
     Route: 048
     Dates: start: 20110323
  2. BLINDED FEBUXOSTAT [Suspect]
     Indication: HYPERURICAEMIA
     Dosage: UNK, QD
     Route: 048
     Dates: start: 20110323
  3. ISOSORBIDE SR (IMDUR) [Concomitant]
     Indication: CORONARY ARTERY DISEASE
     Dosage: 30 MG, QD
     Route: 048
     Dates: start: 201012
  4. ASPIRIN [Concomitant]
     Indication: ROUTINE HEALTH MAINTENANCE
     Dosage: 81 MG, QD
     Route: 048
     Dates: start: 2005
  5. CLONAZEPAM [Concomitant]
     Indication: TREMOR
     Dosage: 10 MG, QD
     Route: 048
     Dates: start: 20100304
  6. COUMADIN                           /00014802/ [Concomitant]
     Indication: PROPHYLAXIS
     Dosage: 2 MG, QD
     Route: 048
     Dates: start: 2005
  7. COUMADIN                           /00014802/ [Concomitant]
     Dosage: 2 MG, Q MONDAY + FRIDAYS ONLY
     Route: 048
     Dates: start: 2005
  8. SIMVASTATIN [Concomitant]
     Indication: HYPERCHOLESTEROLAEMIA
     Dosage: 40 MG, QD
     Route: 048
     Dates: start: 2010
  9. OMEGA 3                            /01334101/ [Concomitant]
     Indication: ROUTINE HEALTH MAINTENANCE
     Dosage: 1000 MG, QD
     Route: 048
     Dates: start: 2006
  10. NITROGLYCERINE [Concomitant]
     Indication: ANGINA PECTORIS
     Dosage: 0.4 MG, PRN
     Route: 060
     Dates: start: 201012
  11. TIMOLOL MALEATE SOL [Concomitant]
     Indication: GLAUCOMA
     Dosage: 0.5 %, BID
     Route: 031
     Dates: start: 20110411
  12. ALBUTEROL INHALER [Concomitant]
     Indication: SEASONAL ALLERGY
     Dosage: II PUFFS, Q6HR
     Route: 050
     Dates: start: 20110410
  13. FLUTICASONE PROPIONATE NASAL SPRAY [Concomitant]
     Indication: SEASONAL ALLERGY
     Dosage: 50 ?G, QD
     Route: 050
     Dates: start: 201108
  14. BETADINE DRESSING [Concomitant]
     Indication: DIABETIC FOOT
     Dosage: 1 APPLICATION, DAILY
     Route: 061
     Dates: start: 20120213
  15. QVAR [Concomitant]
     Indication: ASTHMA
     Dosage: 80 ?G, 4 PUFFS BID
     Route: 050
     Dates: start: 20130403
  16. TRIAMCINOLONE [Concomitant]
     Indication: ASTHMA
     Dosage: 55 ?G, QD
     Route: 050
     Dates: start: 20130408
  17. METOPROLOL [Concomitant]
     Indication: HYPERTENSION
     Dosage: 25 MG, BID
     Route: 048
     Dates: start: 20130408
  18. LASIX                              /00032601/ [Concomitant]
     Indication: HYPERTENSION
     Dosage: 20 MG, QD
     Route: 048
     Dates: start: 20130408
  19. FEROSUL [Concomitant]
     Indication: ANAEMIA
     Dosage: 325 MG, BID
     Route: 048
     Dates: start: 20130408
  20. METOLAZONE [Concomitant]
     Indication: HYPERTENSION
     Dosage: 2.5 MG, QD
     Route: 048
     Dates: start: 20130408
  21. MONTELUKAST [Concomitant]
     Indication: ASTHMA
     Dosage: 10 MG, QHD
     Route: 048
     Dates: start: 20130408
  22. NOVOLOG [Concomitant]
     Indication: DIABETES MELLITUS
     Dosage: 100 IU, 10-15 IU QD
     Route: 058
     Dates: start: 20130408
  23. LANTUS [Concomitant]
     Indication: DIABETES MELLITUS
     Dosage: 100 IU, 5 UNITS QHD
     Route: 058
     Dates: start: 20130408
  24. LISINOPRIL [Concomitant]
     Indication: HYPERTENSION
     Dosage: 10 MG, QD
     Route: 048
     Dates: start: 20130408
  25. COLACE [Concomitant]
     Indication: CONSTIPATION PROPHYLAXIS
     Dosage: 100 MG, BID
     Route: 048
     Dates: start: 20130621
  26. NORCO [Concomitant]
     Indication: PAIN MANAGEMENT
     Dosage: 5-325 MG, Q4HR PRN
     Route: 048
     Dates: start: 20130621

REACTIONS (1)
  - Toe amputation [Recovered/Resolved]
